FAERS Safety Report 21902554 (Version 1)
Quarter: 2023Q1

REPORT INFORMATION
  Report Type: Spontaneous
  Country: US (occurrence: US)
  Receive Date: 20230124
  Receipt Date: 20230124
  Transmission Date: 20230418
  Serious: No
  Sender: FDA-Public Use
  Company Number: US-TEVA-2023-US-2844228

PATIENT
  Age: 46 Year
  Sex: Male

DRUGS (1)
  1. PROPRANOLOL HYDROCHLORIDE [Suspect]
     Active Substance: PROPRANOLOL HYDROCHLORIDE
     Indication: Anxiety
     Dosage: 160 MILLIGRAM DAILY; TWO CAPSULES DAILY
     Route: 048

REACTIONS (6)
  - Feeling abnormal [Unknown]
  - Heart rate decreased [Unknown]
  - Product taste abnormal [Unknown]
  - Product dosage form issue [Unknown]
  - Off label use [Unknown]
  - Drug ineffective for unapproved indication [Unknown]

NARRATIVE: CASE EVENT DATE: 20221001
